FAERS Safety Report 6251795-6 (Version None)
Quarter: 2009Q2

REPORT INFORMATION
  Report Type: 
  Country: None (occurrence: None)
  Receive Date: 20090630
  Receipt Date: 20090620
  Transmission Date: 20091009
  Serious: Yes (Hospitalization, Other)
  Sender: FDA-Public Use
  Company Number: US-PFIZER INC-2009198302

PATIENT
  Sex: Female
  Weight: 50.794 kg

DRUGS (3)
  1. LYRICA [Suspect]
     Indication: FIBROMYALGIA
     Dosage: 25 MG, 1X/DAY
     Dates: start: 20090403, end: 20090409
  2. CELEBREX [Suspect]
     Indication: PAIN
     Dosage: UNK
     Dates: start: 20090310, end: 20090310
  3. PROMETHAZINE [Concomitant]

REACTIONS (5)
  - ELECTROENCEPHALOGRAM ABNORMAL [None]
  - HYPOAESTHESIA [None]
  - PRURITUS GENERALISED [None]
  - TREMOR [None]
  - UNEVALUABLE EVENT [None]
